FAERS Safety Report 6977406-X (Version None)
Quarter: 2010Q3

REPORT INFORMATION
  Report Type: 
  Country: None (occurrence: None)
  Receive Date: 20100910
  Receipt Date: 20100831
  Transmission Date: 20110219
  Serious: Yes (Hospitalization)
  Sender: FDA-Public Use
  Company Number: CH-ABBOTT-10P-151-0668030-00

PATIENT
  Age: 51 Year
  Sex: Male

DRUGS (3)
  1. KALETRA [Suspect]
     Indication: HIV INFECTION CDC GROUP III
     Dosage: 50/200MG, 3 TABS IN AM, 2 TABS IN PM
     Route: 048
     Dates: start: 20070116
  2. INTELENCE [Suspect]
     Indication: HIV INFECTION CDC GROUP III
     Dosage: LONG TERM
     Route: 048
  3. ISENTRESS [Suspect]
     Indication: HIV INFECTION CDC GROUP III
     Route: 048
     Dates: start: 20100505

REACTIONS (1)
  - DYSARTHRIA [None]
